FAERS Safety Report 19415487 (Version 1)
Quarter: 2021Q2

REPORT INFORMATION
  Report Type: Spontaneous
  Country: IE (occurrence: IE)
  Receive Date: 20210614
  Receipt Date: 20210614
  Transmission Date: 20210717
  Serious: Yes (Life-Threatening, Other)
  Sender: FDA-Public Use
  Company Number: IE-PRECISION DOSE, INC.-2021PRD00003

PATIENT
  Age: 30 Year
  Sex: Female

DRUGS (2)
  1. METOPROLOL. [Suspect]
     Active Substance: METOPROLOL
     Route: 042
  2. PHENTOLAMINE MESYLATE. [Suspect]
     Active Substance: PHENTOLAMINE MESYLATE
     Route: 042

REACTIONS (3)
  - Pulseless electrical activity [Recovered/Resolved]
  - Hypotension [Unknown]
  - Cardiac arrest [Recovered/Resolved]
